FAERS Safety Report 7704994-8 (Version None)
Quarter: 2011Q3

REPORT INFORMATION
  Report Type: 
  Country: None (occurrence: None)
  Receive Date: 20110823
  Receipt Date: 20110809
  Transmission Date: 20111222
  Serious: Yes (Death, Other)
  Sender: FDA-Public Use
  Company Number: US-WATSON-2011-12568

PATIENT
  Sex: Male

DRUGS (2)
  1. METOCLOPRAMIDE HYDROCHLORIDE [Suspect]
     Indication: PRODUCT USED FOR UNKNOWN INDICATION
     Dosage: UNK
     Route: 048
     Dates: start: 19930101, end: 20001201
  2. REGLAN [Suspect]
     Indication: PRODUCT USED FOR UNKNOWN INDICATION
     Dosage: UNK
     Route: 048
     Dates: start: 19930101, end: 20001201

REACTIONS (4)
  - INCORRECT DRUG ADMINISTRATION DURATION [None]
  - TARDIVE DYSKINESIA [None]
  - DEATH [None]
  - EXTRAPYRAMIDAL DISORDER [None]
